FAERS Safety Report 7606372-9 (Version None)
Quarter: 2011Q3

REPORT INFORMATION
  Report Type: 
  Country: None (occurrence: None)
  Receive Date: 20110712
  Receipt Date: 20110712
  Transmission Date: 20111222
  Serious: Yes (Hospitalization)
  Sender: FDA-Public Use
  Company Number: None

PATIENT
  Age: 67 Year
  Sex: Male
  Weight: 106.8 kg

DRUGS (1)
  1. MITOMYCIN [Suspect]
     Dosage: 7 MG IV
     Route: 042
     Dates: start: 20110222, end: 20110322

REACTIONS (5)
  - THROMBOCYTOPENIA [None]
  - ASTHENIA [None]
  - HEADACHE [None]
  - HYPOTENSION [None]
  - FATIGUE [None]
